FAERS Safety Report 23892040 (Version 1)
Quarter: 2024Q2

REPORT INFORMATION
  Report Type: Spontaneous
  Country: US (occurrence: None)
  Receive Date: 20240524
  Receipt Date: 20240524
  Transmission Date: 20240715
  Serious: Yes (Hospitalization, Other)
  Sender: FDA-Public Use
  Company Number: US-ROCHE-3345272

PATIENT
  Sex: Female

DRUGS (2)
  1. ACTEMRA [Suspect]
     Active Substance: TOCILIZUMAB
     Indication: Giant cell arteritis
     Dosage: SELF INJECTABLE
     Route: 065
     Dates: end: 20210708
  2. ACTEMRA [Suspect]
     Active Substance: TOCILIZUMAB
     Dosage: SELF INJECTABLE ;ONGOING: NO
     Route: 065
     Dates: start: 20191105, end: 20210606

REACTIONS (6)
  - Bacterial rhinitis [Unknown]
  - Pneumonia [Recovered/Resolved]
  - Lung neoplasm [Recovered/Resolved]
  - Asthma [Unknown]
  - Chronic sinusitis [Unknown]
  - Upper-airway cough syndrome [Unknown]

NARRATIVE: CASE EVENT DATE: 20210601
